FAERS Safety Report 14880324 (Version 1)
Quarter: 2018Q2

REPORT INFORMATION
  Report Type: Spontaneous
  Country: US (occurrence: US)
  Receive Date: 20180425
  Receipt Date: 20180425
  Transmission Date: 20180711
  Serious: Yes (Life-Threatening, Hospitalization)
  Sender: FDA-Public Use
  Company Number: None

PATIENT
  Age: 71 Year
  Sex: Female
  Weight: 58.5 kg

DRUGS (12)
  1. RALOXIFENE. [Concomitant]
     Active Substance: RALOXIFENE
  2. CALCIUM [Concomitant]
     Active Substance: CALCIUM
  3. GULCOSAMINE [Concomitant]
  4. LAMISIL [Suspect]
     Active Substance: TERBINAFINE HYDROCHLORIDE
     Indication: SPOROTRICHOSIS
     Dosage: ?          QUANTITY:2 CAPSULE(S);?
     Route: 048
     Dates: start: 20180213, end: 20180422
  5. ITRACONAZOL [Concomitant]
     Active Substance: ITRACONAZOLE
  6. MULTI-VITAMEN [Concomitant]
  7. PRESERVISION-AREDS 2 [Concomitant]
  8. VITAMEN D3 [Concomitant]
  9. FISH OIL [Concomitant]
     Active Substance: FISH OIL
  10. L-THYROXINE [Concomitant]
     Active Substance: LEVOTHYROXINE
  11. SIMVISTATIN [Concomitant]
     Active Substance: SIMVASTATIN
  12. BABY ASPIRIN [Concomitant]
     Active Substance: ASPIRIN

REACTIONS (13)
  - Breath odour [None]
  - Neutrophil count decreased [None]
  - Fluid intake reduced [None]
  - White blood cell disorder [None]
  - Cheilitis [None]
  - Chills [None]
  - Feeding disorder [None]
  - Ageusia [None]
  - Pyrexia [None]
  - Fatigue [None]
  - Dysgeusia [None]
  - Stomatitis [None]
  - Pain [None]

NARRATIVE: CASE EVENT DATE: 20180315
